FAERS Safety Report 19996706 (Version 1)
Quarter: 2021Q4

REPORT INFORMATION
  Report Type: Spontaneous
  Country: US (occurrence: US)
  Receive Date: 20211025
  Receipt Date: 20211025
  Transmission Date: 20220303
  Serious: No
  Sender: FDA-Public Use
  Company Number: US-ENDO PHARMACEUTICALS INC-2021-012188

PATIENT
  Age: 35 Year
  Sex: Female

DRUGS (3)
  1. QWO [Suspect]
     Active Substance: COLLAGENASE CLOSTRIDIUM HISTOLYTICUM-AAES
     Indication: Peau d^orange
     Dosage: 1.84 MG, UNKNOWN; FIRST TREATMENT
     Dates: start: 20210415
  2. QWO [Suspect]
     Active Substance: COLLAGENASE CLOSTRIDIUM HISTOLYTICUM-AAES
     Dosage: 1.84 MG, UNKNOWN; SECOND TREATMENT
     Dates: start: 20210527
  3. QWO [Suspect]
     Active Substance: COLLAGENASE CLOSTRIDIUM HISTOLYTICUM-AAES
     Dosage: 1.84 MG, UNKNOWN; SECONDTHIRD TREATMENT
     Dates: start: 20210719, end: 20210719

REACTIONS (3)
  - Off label use [Recovered/Resolved]
  - Contusion [Recovered/Resolved]
  - Nodule [Not Recovered/Not Resolved]

NARRATIVE: CASE EVENT DATE: 20210101
